FAERS Safety Report 13740554 (Version 1)
Quarter: 2017Q3

REPORT INFORMATION
  Report Type: Spontaneous
  Country: JP (occurrence: JP)
  Receive Date: 20170711
  Receipt Date: 20170711
  Transmission Date: 20171127
  Serious: Yes (Hospitalization)
  Sender: FDA-Public Use
  Company Number: JP-PFIZER INC-2017291490

PATIENT
  Age: 37 Year
  Sex: Female

DRUGS (3)
  1. MEILAX [Concomitant]
     Active Substance: ETHYL LOFLAZEPATE
     Dosage: 1 MG, 1X/DAY (AFTER DINNER)
     Route: 048
  2. JZOLOFT [Suspect]
     Active Substance: SERTRALINE HYDROCHLORIDE
     Dosage: UNK
     Route: 048
  3. LAMICTAL [Concomitant]
     Active Substance: LAMOTRIGINE
     Dosage: 75 MG, DAILY (25 MG IN THE MORNING AND 50 MG IN THE EVENING)
     Route: 048

REACTIONS (1)
  - Colitis [Unknown]
